FAERS Safety Report 6003701-7 (Version None)
Quarter: 2008Q4

REPORT INFORMATION
  Report Type: 
  Country: None (occurrence: None)
  Receive Date: 20081212
  Receipt Date: 20081212
  Transmission Date: 20090506
  Serious: Yes (Other)
  Sender: FDA-Public Use
  Company Number: None

PATIENT
  Sex: Female
  Weight: 99.7913 kg

DRUGS (2)
  1. BOTOX [Suspect]
     Indication: TIC
  2. BOTOX [Suspect]
     Indication: TOURETTE'S DISORDER

REACTIONS (6)
  - ABDOMINAL PAIN LOWER [None]
  - DYSPNOEA [None]
  - EDUCATIONAL PROBLEM [None]
  - LYMPHADENITIS [None]
  - LYMPHOMA [None]
  - VIRAL INFECTION [None]
